FAERS Safety Report 18006323 (Version 1)
Quarter: 2020Q3

REPORT INFORMATION
  Report Type: Other
  Country: FR (occurrence: FR)
  Receive Date: 20200709
  Receipt Date: 20200709
  Transmission Date: 20201103
  Serious: Yes (Hospitalization, Other)
  Sender: FDA-Public Use
  Company Number: FR-CELLTRION INC.-2020FR023956

PATIENT

DRUGS (2)
  1. RITUXIMAB (UNKNOWN) [Suspect]
     Active Substance: RITUXIMAB
     Indication: DIFFUSE LARGE B-CELL LYMPHOMA
     Dosage: UNK
     Route: 065
  2. REVLIMID [Suspect]
     Active Substance: LENALIDOMIDE
     Indication: DIFFUSE LARGE B-CELL LYMPHOMA
     Dosage: UNK
     Route: 065

REACTIONS (11)
  - Immune thrombocytopenia [Unknown]
  - Marginal zone lymphoma [Unknown]
  - Lung disorder [Unknown]
  - Neoplasm progression [Unknown]
  - Cardiac failure congestive [Recovering/Resolving]
  - Off label use [Unknown]
  - Product use issue [Unknown]
  - Ventricular hypokinesia [Recovering/Resolving]
  - Pancytopenia [Unknown]
  - Cardiac failure [Unknown]
  - Pyrexia [Unknown]

NARRATIVE: CASE EVENT DATE: 201810
